FAERS Safety Report 4572011-7 (Version None)
Quarter: 2005Q1

REPORT INFORMATION
  Report Type: 
  Country: None (occurrence: None)
  Receive Date: 20050203
  Receipt Date: 20050203
  Transmission Date: 20050727
  Serious: Yes (Other)
  Sender: FDA-Public Use
  Company Number: None

PATIENT
  Age: 46 Year
  Sex: Female
  Weight: 73.6 kg

DRUGS (1)
  1. IOPAMIDOL [Suspect]
     Indication: SCAN WITH CONTRAST
     Dosage: 130ML (2ML/SEC) IV
     Route: 042
     Dates: start: 20041118

REACTIONS (6)
  - CHEST DISCOMFORT [None]
  - HEADACHE [None]
  - NAUSEA [None]
  - RESPIRATORY RATE INCREASED [None]
  - SYNCOPE [None]
  - VOMITING [None]
